FAERS Safety Report 6101335-7 (Version None)
Quarter: 2009Q1

REPORT INFORMATION
  Report Type: 
  Country: None (occurrence: None)
  Receive Date: 20090304
  Receipt Date: 20090213
  Transmission Date: 20090719
  Serious: No
  Sender: FDA-Public Use
  Company Number: DE-ASTRAZENECA-2009PK00596

PATIENT
  Age: 72 Year
  Sex: Female

DRUGS (13)
  1. CRESTOR [Suspect]
     Route: 048
     Dates: start: 20090116
  2. CRESTOR [Suspect]
     Route: 048
  3. CONCOR [Concomitant]
     Route: 048
  4. ASPIRIN [Concomitant]
  5. CARMEN [Concomitant]
  6. LEVOTHYROXINE SODIUM [Concomitant]
     Route: 048
  7. TAMBOCOR MITE [Concomitant]
  8. OLMESARTAN MEDOXOMIL AND HYDROCHLOROTHIZIDE [Concomitant]
  9. OEKOLP [Concomitant]
  10. DALMADORM [Concomitant]
  11. WOBENZYM [Concomitant]
  12. TRUSOPT [Concomitant]
  13. KWAI N [Concomitant]

REACTIONS (3)
  - AGITATION [None]
  - HEADACHE [None]
  - SLEEP DISORDER [None]
